FAERS Safety Report 9657777 (Version 1)
Quarter: 2013Q4

REPORT INFORMATION
  Report Type: Spontaneous
  Country: US (occurrence: US)
  Receive Date: 20131030
  Receipt Date: 20131030
  Transmission Date: 20140711
  Serious: Yes (Other)
  Sender: FDA-Public Use
  Company Number: CHPA2013US016402

PATIENT
  Age: 66 Year
  Sex: Female

DRUGS (2)
  1. VOLTAREN GEL [Suspect]
     Indication: ARTHRITIS
     Dosage: UNK, BID
     Route: 061
     Dates: start: 201308
  2. VOLTAREN GEL [Suspect]
     Dosage: UNK, QID
     Route: 061

REACTIONS (2)
  - Bursitis [Recovered/Resolved]
  - Underdose [Unknown]
